FAERS Safety Report 13542756 (Version 1)
Quarter: 2017Q2

REPORT INFORMATION
  Report Type: Spontaneous
  Country: US (occurrence: US)
  Receive Date: 20170512
  Receipt Date: 20170512
  Transmission Date: 20170830
  Serious: No
  Sender: FDA-Public Use
  Company Number: US-ROCHE-702942

PATIENT
  Age: 70 Year
  Sex: Female

DRUGS (5)
  1. 5-FU [Suspect]
     Active Substance: FLUOROURACIL
     Indication: COLORECTAL CANCER METASTATIC
     Dosage: DRUG: MODIFIED 5-FU/LV, DOSE AND FREQUENCY: UNKNONW
     Route: 065
     Dates: start: 20090919, end: 201002
  2. AVASTIN [Suspect]
     Active Substance: BEVACIZUMAB
     Route: 042
  3. 5-FU [Suspect]
     Active Substance: FLUOROURACIL
     Dosage: MODIFIED 5- FU/LV
     Route: 065
  4. AVASTIN [Suspect]
     Active Substance: BEVACIZUMAB
     Route: 042
     Dates: start: 20090919, end: 201002
  5. AVASTIN [Suspect]
     Active Substance: BEVACIZUMAB
     Indication: COLORECTAL CANCER METASTATIC
     Dosage: DOSE: 350 MG (5MG/KG)
     Route: 042
     Dates: start: 20090329, end: 20090819

REACTIONS (1)
  - Proteinuria [Unknown]

NARRATIVE: CASE EVENT DATE: 20100308
